FAERS Safety Report 8309722-3 (Version None)
Quarter: 2012Q2

REPORT INFORMATION
  Report Type: 
  Country: None (occurrence: None)
  Receive Date: 20120423
  Receipt Date: 20120412
  Transmission Date: 20120825
  Serious: Yes (Hospitalization)
  Sender: FDA-Public Use
  Company Number: 2012000082

PATIENT
  Age: 56 Year
  Sex: Female

DRUGS (2)
  1. ACEON [Suspect]
     Indication: PRODUCT USED FOR UNKNOWN INDICATION
     Dosage: 10 MG, QD, ORAL
     Route: 048
  2. ATORVASTATIN [Concomitant]

REACTIONS (4)
  - ABDOMINAL PAIN [None]
  - ANGIOEDEMA [None]
  - VISCERAL OEDEMA [None]
  - DIARRHOEA [None]
